FAERS Safety Report 21348152 (Version 3)
Quarter: 2023Q1

REPORT INFORMATION
  Report Type: Spontaneous
  Country: DE (occurrence: DE)
  Receive Date: 20220919
  Receipt Date: 20230214
  Transmission Date: 20230418
  Serious: Yes (Hospitalization, Other)
  Sender: FDA-Public Use
  Company Number: DE-NOVARTISPH-NVSC2022DE205644

PATIENT
  Age: 83 Year
  Sex: Female
  Weight: 70 kg

DRUGS (12)
  1. CANDESARTAN [Interacting]
     Active Substance: CANDESARTAN
     Indication: Product used for unknown indication
     Dosage: 32 MG,QD (16 MG, 1-0-1.5-0, TABLETTEN)
     Route: 048
  2. AMLODIPINE [Interacting]
     Active Substance: AMLODIPINE BESYLATE
     Indication: Product used for unknown indication
     Dosage: 10 MG, QD  (5 MG, 0-0-1-0, TABLETTEN)
     Route: 048
  3. BISOPROLOL [Interacting]
     Active Substance: BISOPROLOL
     Indication: Product used for unknown indication
     Dosage: 2.5 MG, BID (5 MG, 0.5-0-0.5-0, TABLETTEN)
     Route: 048
  4. BISOPROLOL [Interacting]
     Active Substance: BISOPROLOL
     Dosage: 10 MG, QD (5 MG, 0.5-0-0.5-0, TABLETS)
     Route: 065
  5. BISOPROLOL [Interacting]
     Active Substance: BISOPROLOL
     Dosage: 10 MG,QD (5 MG, 0.5-0-0.5-0, TABLETTEN)
     Route: 048
  6. TORSEMIDE [Interacting]
     Active Substance: TORSEMIDE
     Indication: Product used for unknown indication
     Dosage: 5 MG, QD (5 MG, 1-0-0-0, TABLETTEN)
     Route: 048
  7. MIRTAZAPINE [Interacting]
     Active Substance: MIRTAZAPINE
     Indication: Product used for unknown indication
     Dosage: 30 MG, QD (30 MG, 0-0-0-1, TABLETTEN)
     Route: 048
  8. PREGABALIN [Interacting]
     Active Substance: PREGABALIN
     Indication: Product used for unknown indication
     Dosage: 100 MG,QD (50 MG, 1-0-0-1, CAPSULES)
     Route: 048
  9. BRIVUDINE [Interacting]
     Active Substance: BRIVUDINE
     Indication: Product used for unknown indication
     Dosage: 125 MG, QD (125 MG, 0-1-0-0, TABLETTEN)
     Route: 048
  10. METAMIZOLE [Concomitant]
     Active Substance: METAMIZOLE
     Indication: Product used for unknown indication
     Dosage: 500 MG, Q6H (1-1-1-1, TABLETS)
     Route: 048
  11. ATORVASTATIN [Concomitant]
     Active Substance: ATORVASTATIN
     Indication: Product used for unknown indication
     Dosage: 40 MG, 0-0-1-0, TABLETTEN
     Route: 048
  12. EDOXABAN [Concomitant]
     Active Substance: EDOXABAN
     Indication: Product used for unknown indication
     Dosage: 60 MG, 1-0-0-0, TABLETTEN
     Route: 048

REACTIONS (10)
  - Acute kidney injury [Unknown]
  - Systemic infection [Unknown]
  - Hypokalaemia [Unknown]
  - Tremor [Unknown]
  - Tachycardia [Unknown]
  - Dyspnoea [Unknown]
  - Herpes zoster [Unknown]
  - Hypertension [Unknown]
  - Oedema peripheral [Unknown]
  - Hyponatraemia [Unknown]
